FAERS Safety Report 7906196-9 (Version None)
Quarter: 2011Q4

REPORT INFORMATION
  Report Type: 
  Country: None (occurrence: None)
  Receive Date: 20111110
  Receipt Date: 20110127
  Transmission Date: 20120403
  Serious: Yes (Other)
  Sender: FDA-Public Use
  Company Number: US-BAYER-201035059NA

PATIENT
  Age: 28 Year
  Sex: Female
  Weight: 72.562 kg

DRUGS (13)
  1. NASACORT AQ [Concomitant]
     Dosage: 55 ?G, QD
  2. NSAID'S [Concomitant]
     Dosage: UNK UNK, PRN
     Dates: start: 20020101, end: 20080101
  3. IBUPROFEN [Concomitant]
     Indication: HEADACHE
     Dosage: 800 MG, PRN
     Route: 048
     Dates: start: 20061010
  4. KEPPRA [Concomitant]
     Indication: EPILEPSY
     Dosage: 500 MG, BID
     Dates: start: 20020101, end: 20080101
  5. PHENERGAN [Concomitant]
     Indication: NAUSEA
     Dosage: 25 MG, PRN
     Route: 048
  6. LORTAB [Concomitant]
     Indication: PAIN
     Dosage: 5 MG, PRN
  7. IBUPROFEN [Concomitant]
     Dosage: 800 MG, PRN
     Route: 048
     Dates: start: 20070711
  8. ALBUTEROL [Concomitant]
     Dosage: 2 PUFF(S), PRN
  9. YASMIN [Suspect]
     Indication: DYSMENORRHOEA
  10. IBUPROFEN [Concomitant]
     Dosage: 800 MG, PRN
     Route: 048
     Dates: start: 20070115
  11. YASMIN [Suspect]
     Indication: PREMENSTRUAL SYNDROME
     Dosage: UNK UNK, QD
     Route: 048
     Dates: start: 20070901, end: 20081001
  12. CELEXA [Concomitant]
     Indication: DEPRESSION
     Dosage: 20 MG, UNK
     Route: 048
  13. MEDROL [Concomitant]
     Dosage: 4 MG, UNK

REACTIONS (5)
  - CHOLECYSTITIS CHRONIC [None]
  - ABDOMINAL PAIN UPPER [None]
  - BACK PAIN [None]
  - GALLBLADDER DISORDER [None]
  - PAIN [None]
